FAERS Safety Report 9554176 (Version 1)
Quarter: 2013Q3

REPORT INFORMATION
  Report Type: Spontaneous
  Country: IN (occurrence: None)
  Receive Date: 20130814
  Receipt Date: 20130814
  Transmission Date: 20140515
  Serious: Yes (Hospitalization)
  Sender: FDA-Public Use
  Company Number: 2012-00982

PATIENT
  Sex: 0

DRUGS (6)
  1. ETHAMBUTOL [Suspect]
     Indication: PRODUCT USED FOR UNKNOWN INDICATION
  2. RIFAMPICIN (UNKNOWN) [Suspect]
  3. PYRAZINAMIDE [Suspect]
     Indication: PRODUCT USED FOR UNKNOWN INDICATION
  4. ISONIAZID (UNKNOWN) [Suspect]
     Indication: PRODUCT USED FOR UNKNOWN INDICATION
     Dates: start: 2013
  5. STREPTOMYCIN [Concomitant]
  6. OFLOXACIN [Concomitant]

REACTIONS (1)
  - Dermatitis exfoliative [None]
